FAERS Safety Report 7522388-5 (Version None)
Quarter: 2011Q2

REPORT INFORMATION
  Report Type: 
  Country: None (occurrence: None)
  Receive Date: 20110525
  Receipt Date: 20110516
  Transmission Date: 20111010
  Serious: Yes (Disabling, Other)
  Sender: FDA-Public Use
  Company Number: ACO_24407_2011

PATIENT
  Age: 36 Year
  Sex: Male
  Weight: 79.4 kg

DRUGS (7)
  1. BACLOFEN [Concomitant]
  2. TIZANIDINE (TIZANIDINE HYDROCHLORIDE) [Concomitant]
  3. SOMA [Concomitant]
  4. MORNIFLUMATE (MORNIFLUMATE) [Concomitant]
  5. AMPYRA [Suspect]
     Indication: GAIT DISTURBANCE
     Dosage: 10 MG, BID, ORAL
     Route: 048
     Dates: start: 20110513, end: 20110515
  6. AMANTADINE HCL [Concomitant]
  7. OXYCONTIN [Concomitant]

REACTIONS (1)
  - AUTONOMIC NERVOUS SYSTEM IMBALANCE [None]
